FAERS Safety Report 6583643-9 (Version None)
Quarter: 2010Q1

REPORT INFORMATION
  Report Type: 
  Country: None (occurrence: None)
  Receive Date: 20100216
  Receipt Date: 20100208
  Transmission Date: 20100710
  Serious: Yes (Other)
  Sender: FDA-Public Use
  Company Number: US-ABBOTT-10P-163-0624831-00

PATIENT
  Age: 40 Year
  Sex: Female

DRUGS (4)
  1. KALETRA [Suspect]
     Indication: HIV INFECTION
     Dosage: 4 TABS PER DAY
     Route: 048
     Dates: end: 20090511
  2. KALETRA [Suspect]
     Dosage: 6 TABS PER DAY
     Route: 048
     Dates: start: 20090511, end: 20090519
  3. EPZICOM [Suspect]
     Indication: HIV INFECTION
     Route: 048
  4. ZIDOVUDINE [Suspect]
     Indication: HIV INFECTION
     Route: 042
     Dates: start: 20090519, end: 20090519

REACTIONS (1)
  - PREMATURE RUPTURE OF MEMBRANES [None]
